FAERS Safety Report 17684234 (Version 1)
Quarter: 2020Q2

REPORT INFORMATION
  Report Type: Spontaneous
  Country: US (occurrence: US)
  Receive Date: 20200417
  Receipt Date: 20200417
  Transmission Date: 20200714
  Serious: Yes (Life-Threatening, Hospitalization)
  Sender: FDA-Public Use
  Company Number: None

PATIENT
  Age: 72 Year
  Sex: Female
  Weight: 92.53 kg

DRUGS (11)
  1. FLUTICASONE SPRAY [Concomitant]
     Active Substance: FLUTICASONE
  2. BENEFIBER [Concomitant]
     Active Substance: STARCH, WHEAT
  3. MECLIZINE [Concomitant]
     Active Substance: MECLIZINE HYDROCHLORIDE
  4. SIMVASTATIN. [Concomitant]
     Active Substance: SIMVASTATIN
  5. ROLAIDS [Concomitant]
     Active Substance: CALCIUM CARBONATE\MAGNESIUM HYDROXIDE
  6. LISINOPRIL. [Concomitant]
     Active Substance: LISINOPRIL
  7. LORATADINE. [Concomitant]
     Active Substance: LORATADINE
  8. VITAMIN D3 [Concomitant]
     Active Substance: CHOLECALCIFEROL
  9. RANITIDINE. [Suspect]
     Active Substance: RANITIDINE
     Indication: GASTROOESOPHAGEAL REFLUX DISEASE
     Dosage: ?          QUANTITY:1 DF DOSAGE FORM;?
     Route: 048
     Dates: start: 20140424
  10. CENTRUM SILVER [Concomitant]
     Active Substance: MINERALS\VITAMINS
  11. METOPROLOL ER [Concomitant]
     Active Substance: METOPROLOL SUCCINATE

REACTIONS (2)
  - Renal neoplasm [None]
  - Renal tumour excision [None]

NARRATIVE: CASE EVENT DATE: 20141119
